FAERS Safety Report 9362211 (Version 1)
Quarter: 2013Q2

REPORT INFORMATION
  Report Type: Spontaneous
  Country: KR (occurrence: KR)
  Receive Date: 20130622
  Receipt Date: 20130622
  Transmission Date: 20140414
  Serious: Yes (Other)
  Sender: FDA-Public Use
  Company Number: KR-ACCORD-018150

PATIENT
  Age: 40 Year
  Sex: Female

DRUGS (1)
  1. MITOMYCIN [Suspect]
     Indication: CONJUNCTIVAL HYPERAEMIA
     Dosage: 0.2 MG/ML, 0.02 %, EYE DROPS FOUR TIMES DAILY FOR 5 DAYS
     Route: 061

REACTIONS (2)
  - Scleromalacia [Not Recovered/Not Resolved]
  - Off label use [Unknown]
